FAERS Safety Report 14523367 (Version 1)
Quarter: 2018Q1

REPORT INFORMATION
  Report Type: Spontaneous
  Country: US (occurrence: US)
  Receive Date: 20180212
  Receipt Date: 20180212
  Transmission Date: 20180509
  Serious: Yes (Death)
  Sender: FDA-Public Use
  Company Number: US-VIFOR (INTERNATIONAL) INC.-VIT-2018-01439

PATIENT
  Age: 86 Year
  Sex: Male

DRUGS (11)
  1. BUMEX [Concomitant]
     Active Substance: BUMETANIDE
  2. ALLOPURINOL. [Concomitant]
     Active Substance: ALLOPURINOL
  3. GUAIFENESIN. [Concomitant]
     Active Substance: GUAIFENESIN
  4. FLUTICASONE FUROATE~~VILANTEROL TRIFENATATE [Concomitant]
  5. BUMETANIDE. [Concomitant]
     Active Substance: BUMETANIDE
  6. LEVEMIR [Concomitant]
     Active Substance: INSULIN DETEMIR
  7. ACETAMINOPHEN. [Concomitant]
     Active Substance: ACETAMINOPHEN
  8. ISOSORBIDE MONONITRATE. [Concomitant]
     Active Substance: ISOSORBIDE MONONITRATE
  9. VELTASSA [Suspect]
     Active Substance: PATIROMER
     Indication: HYPERKALAEMIA
     Route: 048
     Dates: start: 20171122
  10. ACETYLSALICYLIC ACID [Concomitant]
     Active Substance: ASPIRIN
  11. CORICIDIN HBP COLD/FLU [Concomitant]

REACTIONS (2)
  - Off label use [Unknown]
  - Death [Fatal]

NARRATIVE: CASE EVENT DATE: 20171122
